FAERS Safety Report 10146680 (Version 1)
Quarter: 2014Q2

REPORT INFORMATION
  Report Type: Spontaneous
  Country: US (occurrence: None)
  Receive Date: 20140430
  Receipt Date: 20140430
  Transmission Date: 20141212
  Serious: Yes (Life-Threatening, Hospitalization)
  Sender: FDA-Public Use
  Company Number: None

PATIENT
  Age: 52 Year
  Sex: Male

DRUGS (4)
  1. METHADONE [Suspect]
     Indication: SUICIDE ATTEMPT
     Route: 048
     Dates: end: 20140118
  2. ALPRAZOLAM [Concomitant]
  3. CLONAZEPAM [Concomitant]
  4. DEXTROMETHORPHAN [Concomitant]

REACTIONS (3)
  - Bradycardia [None]
  - Overdose [None]
  - Crying [None]
